FAERS Safety Report 26178527 (Version 3)
Quarter: 2025Q4

REPORT INFORMATION
  Report Type: Spontaneous
  Country: CA (occurrence: CA)
  Receive Date: 20251219
  Receipt Date: 20251228
  Transmission Date: 20260117
  Serious: Yes (Hospitalization, Other)
  Sender: IPSEN BIOPHARMACEUTICALS, INC.
  Company Number: CA-IPSEN Group, Research and Development-2025-31094

PATIENT
  Age: 27 Year
  Sex: Female
  Weight: 35.8 kg

DRUGS (8)
  1. BOTULINUM TOXIN TYPE A [Suspect]
     Active Substance: BOTULINUM TOXIN TYPE A
     Indication: Myofascial pain syndrome
     Dosage: INTRA-VAGINALLY USING A PUDENDAL NERVE BLOCK KIT, WITH NEEDLE INJECTION DEPTH OF 1 CM, BY PALPATION OF THE PELVIC FLOOR MUSCLES. A TOTAL DOSE OF 200 UNITS OF BONT-A WAS RECONSTITUTED IN NORMAL SALINE FOR A TOTAL VOLUME OF 20 MILLILITERS; EVENLY DISTRIBUTED ACROSS THREE INJECTIONS SITES BILATERALLY;
     Route: 067
  2. HUMIRA [Concomitant]
     Active Substance: ADALIMUMAB
     Indication: Ankylosing spondylitis
     Dosage: 2.5 YEARS
  3. GABAPENTIN [Concomitant]
     Active Substance: GABAPENTIN
     Indication: Pelvic pain
  4. AMITRIPTYLINE [Concomitant]
     Active Substance: AMITRIPTYLINE
     Indication: Pelvic pain
  5. TOPIRAMATE [Concomitant]
     Active Substance: TOPIRAMATE
     Indication: Pelvic pain
  6. CYCLOBENZAPRINE [Concomitant]
     Active Substance: CYCLOBENZAPRINE
     Indication: Pelvic pain
  7. DULOXETINE [Concomitant]
     Active Substance: DULOXETINE
     Indication: Pelvic pain
  8. SODIUM CHLORIDE [Concomitant]
     Active Substance: SODIUM CHLORIDE
     Dosage: A TOTAL DOSE OF 200 UNITS OF BONT-A WAS RECONSTITUTED IN NORMAL SALINE FOR A TOTAL VOLUME OF 20 MILLILITERS
     Route: 067

REACTIONS (6)
  - Skin necrosis [Unknown]
  - Anal fistula [Unknown]
  - Anal abscess [Unknown]
  - Lactobacillus infection [Unknown]
  - Bacterial infection [Unknown]
  - Bacterial infection [Unknown]
